FAERS Safety Report 8033937-5 (Version None)
Quarter: 2011Q4

REPORT INFORMATION
  Report Type: 
  Country: None (occurrence: None)
  Receive Date: 20111202
  Receipt Date: 20110118
  Transmission Date: 20120403
  Serious: Yes (Other)
  Sender: FDA-Public Use
  Company Number: WAES 0706USA00971

PATIENT
  Age: 49 Year
  Sex: Female
  Weight: 60.3284 kg

DRUGS (4)
  1. FOSAMAX [Suspect]
     Indication: OSTEOPOROSIS
     Dosage: 10 MG/DAILY/PO
     Route: 048
     Dates: start: 20030411
  2. FOSAMAX [Suspect]
     Indication: OSTEOPOROSIS
     Dosage: 70 MG;PO
     Route: 048
     Dates: start: 20030401, end: 20060401
  3. HORMONES (UNSPECIFIED) [Concomitant]
  4. CORTICOSTEROIDS (UNSPECIFIED) [Concomitant]

REACTIONS (34)
  - XEROSIS [None]
  - URINARY TRACT INFECTION [None]
  - JOINT SWELLING [None]
  - UTERINE MASS [None]
  - FIBROMYALGIA [None]
  - TOOTH ABSCESS [None]
  - INSOMNIA [None]
  - ABSCESS [None]
  - ADVERSE EVENT [None]
  - HEADACHE [None]
  - DYSURIA [None]
  - OEDEMA MOUTH [None]
  - PNEUMONIA [None]
  - COUGH [None]
  - BREAST MASS [None]
  - DENTAL CARIES [None]
  - EMPHYSEMA [None]
  - FALL [None]
  - WEIGHT DECREASED [None]
  - TOOTH LOSS [None]
  - PANIC ATTACK [None]
  - OSTEONECROSIS OF JAW [None]
  - CONSTIPATION [None]
  - CONTUSION [None]
  - HYPOACUSIS [None]
  - HYPOAESTHESIA ORAL [None]
  - NEUROPATHY PERIPHERAL [None]
  - BRONCHITIS [None]
  - TREATMENT NONCOMPLIANCE [None]
  - VISION BLURRED [None]
  - DYSPNOEA [None]
  - MUSCULOSKELETAL CHEST PAIN [None]
  - FUNGAL INFECTION [None]
  - PLEURITIC PAIN [None]
